FAERS Safety Report 14855352 (Version 1)
Quarter: 2018Q2

REPORT INFORMATION
  Report Type: Spontaneous
  Country: US (occurrence: US)
  Receive Date: 20180507
  Receipt Date: 20180507
  Transmission Date: 20180711
  Serious: No
  Sender: FDA-Public Use
  Company Number: US-ROCHE-1956635

PATIENT
  Age: 75 Year
  Sex: Male

DRUGS (1)
  1. ESBRIET [Suspect]
     Active Substance: PIRFENIDONE
     Indication: PRODUCT USED FOR UNKNOWN INDICATION
     Dosage: 3 CAPSULES THREE TIMES A DAY WITH FOOD
     Route: 048

REACTIONS (7)
  - Pharyngeal disorder [Unknown]
  - Abdominal pain upper [Unknown]
  - Decreased appetite [Unknown]
  - Constipation [Unknown]
  - Ageusia [Unknown]
  - Fatigue [Unknown]
  - Chest pain [Unknown]
